FAERS Safety Report 17763478 (Version 1)
Quarter: 2020Q2

REPORT INFORMATION
  Report Type: Spontaneous
  Country: GB (occurrence: GB)
  Receive Date: 20200509
  Receipt Date: 20200509
  Transmission Date: 20200714
  Serious: Yes (Other)
  Sender: FDA-Public Use
  Company Number: GB-TEVA-2020-GB-1232096

PATIENT
  Age: 37 Year
  Sex: Female
  Weight: 57 kg

DRUGS (8)
  1. FERROUS FUMARATE [Concomitant]
     Active Substance: FERROUS FUMARATE
  2. ASCORBIC ACID. [Concomitant]
     Active Substance: ASCORBIC ACID
  3. FOLIC ACID. [Concomitant]
     Active Substance: FOLIC ACID
  4. VENTOLIN [Concomitant]
     Active Substance: ALBUTEROL SULFATE
  5. MARINE COLLAGEN, SOLUBLE [Concomitant]
  6. TRIMETHOPRIM. [Suspect]
     Active Substance: TRIMETHOPRIM
     Indication: CYSTITIS
     Dosage: 400 MG
     Route: 048
     Dates: end: 202004
  7. QVAR [Concomitant]
     Active Substance: BECLOMETHASONE DIPROPIONATE
  8. VITAMIN B12 [Concomitant]
     Active Substance: CYANOCOBALAMIN

REACTIONS (3)
  - Nausea [Recovering/Resolving]
  - Tachyphrenia [Recovering/Resolving]
  - Anxiety [Recovering/Resolving]

NARRATIVE: CASE EVENT DATE: 20200417
